FAERS Safety Report 19007951 (Version 1)
Quarter: 2021Q1

REPORT INFORMATION
  Report Type: Spontaneous
  Country: US (occurrence: US)
  Receive Date: 20210315
  Receipt Date: 20210315
  Transmission Date: 20210420
  Serious: Yes (Life-Threatening, Hospitalization)
  Sender: FDA-Public Use
  Company Number: US-BRISTOL-MYERS SQUIBB COMPANY-BMS-2021-024299

PATIENT
  Sex: Male

DRUGS (2)
  1. YERVOY [Suspect]
     Active Substance: IPILIMUMAB
     Indication: NON-SMALL CELL LUNG CANCER
     Dosage: 2 DOSES
     Route: 065
  2. OPDIVO [Suspect]
     Active Substance: NIVOLUMAB
     Indication: NON-SMALL CELL LUNG CANCER
     Dosage: 2 DOSES
     Route: 065

REACTIONS (8)
  - Chest pain [Unknown]
  - Dyspnoea [Unknown]
  - Vision blurred [Unknown]
  - Ocular hyperaemia [Unknown]
  - Back pain [Unknown]
  - Muscular weakness [Unknown]
  - Diplopia [Unknown]
  - Rash [Unknown]
